FAERS Safety Report 8072881-4 (Version None)
Quarter: 2012Q1

REPORT INFORMATION
  Report Type: 
  Country: None (occurrence: None)
  Receive Date: 20120126
  Receipt Date: 20110829
  Transmission Date: 20120608
  Serious: No
  Sender: FDA-Public Use
  Company Number: US-BAUSCH-2011BL005750

PATIENT
  Sex: Male

DRUGS (1)
  1. BESIVANCE [Suspect]
     Indication: PRODUCT USED FOR UNKNOWN INDICATION
     Route: 047

REACTIONS (1)
  - VISION BLURRED [None]
